FAERS Safety Report 4407388-6 (Version None)
Quarter: 2004Q3

REPORT INFORMATION
  Report Type: 
  Country: None (occurrence: None)
  Receive Date: 20040721
  Receipt Date: 20040708
  Transmission Date: 20050211
  Serious: Yes (Life-Threatening, Hospitalization, Disabling)
  Sender: FDA-Public Use
  Company Number: US-JNJFOC-20040702269

PATIENT
  Age: 86 Year
  Sex: Male
  Weight: 87 kg

DRUGS (7)
  1. NATRECOR [Suspect]
     Indication: CARDIAC FAILURE CONGESTIVE
     Dosage: 0.01 UG/KG/MIN, INTRAVENOUS
     Route: 042
     Dates: start: 20040306
  2. SPIRONOLACTONE [Concomitant]
  3. DIGOXIN [Concomitant]
  4. ASPIRIN [Concomitant]
  5. POTASSIUM CHLORIDE [Concomitant]
  6. ALPROZOLAM (ALPRAZOLAM) [Concomitant]
  7. DUONEB (MEDIHALER-DUO) [Concomitant]

REACTIONS (2)
  - ASTHENIA [None]
  - FACIAL PALSY [None]
